FAERS Safety Report 10080468 (Version 3)
Quarter: 2016Q1

REPORT INFORMATION
  Report Type: Spontaneous
  Country: BR (occurrence: BR)
  Receive Date: 20140416
  Receipt Date: 20160316
  Transmission Date: 20160525
  Serious: Yes (Other)
  Sender: FDA-Public Use
  Company Number: BR-PFIZER INC-2013244909

PATIENT
  Age: 63 Year
  Sex: Female

DRUGS (4)
  1. OMEPRAZOLE. [Concomitant]
     Active Substance: OMEPRAZOLE
     Dosage: UNK
  2. SUTENT [Suspect]
     Active Substance: SUNITINIB MALATE
     Dosage: 25 MG, CYCLE 2 PER 1
     Route: 048
     Dates: start: 201308
  3. SUTENT [Suspect]
     Active Substance: SUNITINIB MALATE
     Indication: METASTATIC RENAL CELL CARCINOMA
     Dosage: 50 MG, 1X/DAY, CYCLE 4 PER 2
     Route: 048
     Dates: start: 20130809
  4. FRONTAL [Concomitant]
     Active Substance: ALPRAZOLAM
     Dosage: UNK, AS NEEDED

REACTIONS (15)
  - Memory impairment [Not Recovered/Not Resolved]
  - Dizziness [Unknown]
  - Wound [Not Recovered/Not Resolved]
  - Gait disturbance [Unknown]
  - Limb injury [Unknown]
  - Oral pain [Unknown]
  - Dysgeusia [Unknown]
  - Wheelchair user [Unknown]
  - Stomatitis [Unknown]
  - Blood pressure increased [Unknown]
  - Blister [Unknown]
  - Tachycardia [Unknown]
  - Blood urine [Not Recovered/Not Resolved]
  - Vomiting [Recovering/Resolving]
  - Nephrolithiasis [Unknown]

NARRATIVE: CASE EVENT DATE: 201308
